FAERS Safety Report 9553429 (Version 1)
Quarter: 2013Q3

REPORT INFORMATION
  Report Type: Spontaneous
  Country: US (occurrence: US)
  Receive Date: 20130925
  Receipt Date: 20130925
  Transmission Date: 20140515
  Serious: Yes (Other)
  Sender: FDA-Public Use
  Company Number: US-PFIZER INC-2013274765

PATIENT
  Age: 61 Year
  Sex: Female
  Weight: 81.63 kg

DRUGS (3)
  1. EFFEXOR XR [Suspect]
     Indication: DEPRESSION
     Dosage: UNK
     Route: 048
  2. FOLIC ACID [Concomitant]
     Dosage: 1 MG, 1X/DAY
  3. OMEPRAZOLE [Concomitant]
     Dosage: 20 MG, 1X/DAY

REACTIONS (2)
  - Autoimmune disorder [Unknown]
  - Blood pressure increased [Unknown]
